FAERS Safety Report 6468577-2 (Version None)
Quarter: 2009Q4

REPORT INFORMATION
  Report Type: 
  Country: None (occurrence: None)
  Receive Date: 20091201
  Receipt Date: 20091116
  Transmission Date: 20100525
  Serious: Yes (Hospitalization, Disabling)
  Sender: FDA-Public Use
  Company Number: 002506

PATIENT
  Sex: Male

DRUGS (4)
  1. OMEPRAZOLE [Suspect]
     Indication: PROPHYLAXIS
     Dosage: 20 MG ORAL
     Route: 048
     Dates: start: 20090305
  2. INFLUENZA VACCINE (BLINDED VACCINE INJECTION) [Suspect]
     Dosage: INTRAMUSCULAR
     Route: 030
     Dates: start: 20081017, end: 20081017
  3. RAMIPRIL [Suspect]
     Indication: HYPERTENSION
     Dosage: 2.5 MG ORAL
     Route: 048
     Dates: start: 20080807
  4. TORASEMIDE [Concomitant]

REACTIONS (5)
  - ARRHYTHMIA [None]
  - DEHYDRATION [None]
  - GASTROENTERITIS [None]
  - INFUSION SITE ABSCESS [None]
  - RED BLOOD CELL COUNT DECREASED [None]
